FAERS Safety Report 7371708-3 (Version None)
Quarter: 2011Q1

REPORT INFORMATION
  Report Type: 
  Country: None (occurrence: None)
  Receive Date: 20110324
  Receipt Date: 20110312
  Transmission Date: 20110831
  Serious: Yes (Other)
  Sender: FDA-Public Use
  Company Number: PHHY2010MX45095

PATIENT
  Sex: Female

DRUGS (8)
  1. CAPTOPRIL [Concomitant]
  2. ACLASTA [Suspect]
     Indication: OSTEOPOROSIS
     Dosage: 5 MG, 1 INJECTION PER YEAR
     Route: 042
     Dates: start: 20090109
  3. CALTRATE [Concomitant]
  4. ACLASTA [Suspect]
     Dosage: 5 MG
     Route: 042
     Dates: start: 20100114
  5. ISOSORBIDE DINITRATE [Concomitant]
  6. ACLASTA [Suspect]
     Dosage: 5 MG
     Route: 042
     Dates: start: 20110111
  7. PLANTIVAL [Concomitant]
  8. ANTISTAX [Concomitant]

REACTIONS (3)
  - DYSPNOEA [None]
  - CHRONIC OBSTRUCTIVE PULMONARY DISEASE [None]
  - HYPERTENSION [None]
